FAERS Safety Report 5700774-3 (Version None)
Quarter: 2008Q2

REPORT INFORMATION
  Report Type: 
  Country: None (occurrence: None)
  Receive Date: 20080410
  Receipt Date: 20080326
  Transmission Date: 20081010
  Serious: Yes (Hospitalization)
  Sender: FDA-Public Use
  Company Number: US-AMGEN-KDL268936

PATIENT
  Sex: Female

DRUGS (3)
  1. NEULASTA [Suspect]
     Indication: CHEMOTHERAPY
     Dates: start: 20080211
  2. DOXORUBICIN HYDROCHLORIDE [Concomitant]
     Dates: start: 20080201
  3. IFOSFAMIDE [Concomitant]
     Dates: start: 20080201

REACTIONS (5)
  - ANAEMIA [None]
  - DELIRIUM [None]
  - DRUG INEFFECTIVE [None]
  - FEBRILE NEUTROPENIA [None]
  - MALAISE [None]
